FAERS Safety Report 5726028-7 (Version None)
Quarter: 2008Q2

REPORT INFORMATION
  Report Type: 
  Country: None (occurrence: None)
  Receive Date: 20080501
  Receipt Date: 20080501
  Transmission Date: 20081010
  Serious: Yes (Hospitalization)
  Sender: FDA-Public Use
  Company Number: None

PATIENT
  Sex: Female
  Weight: 63.64 kg

DRUGS (7)
  1. CISPLATIN [Suspect]
     Dosage: 84 MG
  2. DOXORUBICIN HYDROCHLORIDE [Suspect]
     Dosage: 76 MG
  3. TAXOL [Suspect]
     Dosage: 269 MG
  4. NEULASTA [Suspect]
     Dosage: 6 MG
  5. AMBIEN [Concomitant]
  6. MICARDIS [Concomitant]
  7. ZOCOR [Concomitant]

REACTIONS (10)
  - BACK PAIN [None]
  - BLOOD CHLORIDE DECREASED [None]
  - BLOOD GLUCOSE INCREASED [None]
  - BLOOD POTASSIUM DECREASED [None]
  - BLOOD PRESSURE INCREASED [None]
  - BLOOD SODIUM DECREASED [None]
  - HAEMATOCRIT DECREASED [None]
  - HEART RATE INCREASED [None]
  - ILEUS [None]
  - PLATELET COUNT DECREASED [None]
